FAERS Safety Report 7217620-1 (Version None)
Quarter: 2011Q1

REPORT INFORMATION
  Report Type: 
  Country: None (occurrence: None)
  Receive Date: 20110110
  Receipt Date: 20110104
  Transmission Date: 20110831
  Serious: Yes (Hospitalization)
  Sender: FDA-Public Use
  Company Number: GB-ROCHE-746215

PATIENT
  Sex: Female
  Weight: 95 kg

DRUGS (12)
  1. ONDANSETRON [Concomitant]
     Dates: start: 20100812
  2. RAMIPRIL [Concomitant]
     Dates: start: 20101102
  3. TRASTUZUMAB [Suspect]
     Dosage: PERMANENTLY DISCONTINUED. DOSE FORM: VIALS
     Route: 042
     Dates: end: 20101115
  4. BEVACIZUMAB [Suspect]
     Dosage: AS PER PRTOCOL: DOSE: 15 MG/KG. PERMANENTLY DISCONTINUED.
     Route: 042
     Dates: start: 20100805, end: 20101115
  5. DOCETAXEL [Suspect]
     Dosage: PERMANENTLY DISCONTINUED. DOSE FORM: VIALS
     Route: 042
     Dates: start: 20100805, end: 20101115
  6. CARBOPLATIN [Suspect]
     Dosage: PERMANENTLY DISCONTINUED. DOSE FORM: VIALS
     Route: 042
     Dates: start: 20100805, end: 20101115
  7. DEXAMETHASONE [Suspect]
     Route: 065
  8. TRASTUZUMAB [Suspect]
     Route: 042
     Dates: start: 20100804
  9. DICLOFENAC [Concomitant]
     Dates: start: 20101025
  10. CO-CODAMOL [Concomitant]
     Dates: start: 20101025
  11. LOPERAMIDE [Concomitant]
     Dates: start: 20100811
  12. METOCLOPRAMIDE [Concomitant]
     Dates: start: 20100805

REACTIONS (4)
  - ANAEMIA [None]
  - GASTRECTOMY [None]
  - MUSCULOSKELETAL CHEST PAIN [None]
  - HAEMATEMESIS [None]
